FAERS Safety Report 5521598-6 (Version None)
Quarter: 2007Q4

REPORT INFORMATION
  Report Type: 
  Country: None (occurrence: None)
  Receive Date: 20071120
  Receipt Date: 20071113
  Transmission Date: 20080405
  Serious: Yes (Death, Other)
  Sender: FDA-Public Use
  Company Number: ES-WYE-H00966007

PATIENT
  Age: 74 Year
  Sex: Male

DRUGS (11)
  1. TRANGOREX [Suspect]
     Indication: ATRIAL FIBRILLATION
     Route: 048
     Dates: start: 20060101
  2. SERTRALINE [Interacting]
     Indication: DEPRESSION
     Route: 048
  3. ADIRO [Interacting]
     Indication: ISCHAEMIC CARDIOMYOPATHY
     Route: 048
     Dates: start: 20070101
  4. SIMVASTATIN [Interacting]
     Indication: HYPERLIPIDAEMIA
     Route: 048
  5. LORAZEPAM [Concomitant]
  6. NOVOLOG MIX 70/30 [Concomitant]
  7. NOVORAPID [Concomitant]
  8. ENALAPRIL MALEATE [Concomitant]
  9. UNIKET [Concomitant]
  10. ACENOCOUMAROL [Interacting]
     Indication: THROMBOSIS
     Dosage: UNSPECIFIED
     Route: 048
     Dates: start: 20060101
  11. OMEPRAZOLE [Interacting]
     Indication: GASTRITIS
     Route: 048

REACTIONS (3)
  - DRUG INTERACTION [None]
  - GASTROINTESTINAL HAEMORRHAGE [None]
  - PULMONARY OEDEMA [None]
